FAERS Safety Report 23735345 (Version 3)
Quarter: 2025Q1

REPORT INFORMATION
  Report Type: Spontaneous
  Country: CZ (occurrence: CZ)
  Receive Date: 20240412
  Receipt Date: 20250218
  Transmission Date: 20250409
  Serious: Yes (Hospitalization, Other)
  Sender: MERCK SHARP & DOHME LLC
  Company Number: CZ-009507513-2404CZE005464

PATIENT
  Age: 40 Year
  Sex: Female

DRUGS (5)
  1. KEYTRUDA [Suspect]
     Active Substance: PEMBROLIZUMAB
     Indication: Triple negative breast cancer
     Route: 042
     Dates: start: 20230419, end: 20230712
  2. CARBOPLATIN [Suspect]
     Active Substance: CARBOPLATIN
     Indication: Triple negative breast cancer
     Dates: start: 202304
  3. PACLITAXEL [Suspect]
     Active Substance: PACLITAXEL
     Indication: Triple negative breast cancer
     Dosage: DOSE DESCRIPTION : EVERY WEEK, 80 MILLIGRAM/M2?DAILY DOSE : 11.44 MILLIGRAM/SQ. METER?REGIMEN DOS...
     Dates: start: 202304
  4. EPIRUBICIN [Suspect]
     Active Substance: EPIRUBICIN
     Indication: Triple negative breast cancer
     Dates: start: 2023, end: 20230831
  5. CYCLOPHOSPHAMIDE [Suspect]
     Active Substance: CYCLOPHOSPHAMIDE
     Indication: Triple negative breast cancer
     Dates: start: 2023, end: 20230831

REACTIONS (15)
  - Immune-mediated enterocolitis [Unknown]
  - Neutropenia [Unknown]
  - Nausea [Unknown]
  - Fatigue [Unknown]
  - Upper respiratory tract infection [Unknown]
  - Abnormal faeces [Unknown]
  - Immune-mediated enterocolitis [Unknown]
  - Immune-mediated enterocolitis [Unknown]
  - Toxicity to various agents [Unknown]
  - Malnutrition [Unknown]
  - Weight decreased [Unknown]
  - Colitis [Unknown]
  - Off label use [Unknown]
  - Clostridium colitis [Unknown]
  - Hypotension [Unknown]

NARRATIVE: CASE EVENT DATE: 20230101
